FAERS Safety Report 17125266 (Version 3)
Quarter: 2020Q1

REPORT INFORMATION
  Report Type: Spontaneous
  Country: GB (occurrence: GB)
  Receive Date: 20191207
  Receipt Date: 20200129
  Transmission Date: 20200409
  Serious: Yes (Congenital Anomaly, Other)
  Sender: FDA-Public Use
  Company Number: GB-AUROBINDO-AUR-APL-2019-103281

PATIENT

DRUGS (2)
  1. EFAVIRENZ FILM-COATED TABLET [Suspect]
     Active Substance: EFAVIRENZ
     Indication: PRODUCT USED FOR UNKNOWN INDICATION
     Dosage: UNK
     Route: 064
  2. EMTRICITABINE;TENOFOVIR DISOPROXIL FUMARATE [Suspect]
     Active Substance: EMTRICITABINE\TENOFOVIR DISOPROXIL FUMARATE
     Indication: PRODUCT USED FOR UNKNOWN INDICATION
     Dosage: UNK, 1 TRIMESTER
     Route: 064
     Dates: start: 20171006

REACTIONS (3)
  - Hydrops foetalis [Unknown]
  - Foetal exposure during pregnancy [Recovered/Resolved]
  - Trisomy 18 [Unknown]
